FAERS Safety Report 21087772 (Version 1)
Quarter: 2022Q3

REPORT INFORMATION
  Report Type: Spontaneous
  Country: None (occurrence: JP)
  Receive Date: 20220715
  Receipt Date: 20220715
  Transmission Date: 20221027
  Serious: Yes (Other)
  Sender: FDA-Public Use
  Company Number: JP-Acacia Pharma Limited-2130909

PATIENT
  Age: 81 Year
  Sex: Male

DRUGS (3)
  1. BYFAVO [Suspect]
     Active Substance: REMIMAZOLAM BESYLATE
     Indication: General anaesthesia
     Route: 042
     Dates: start: 20210709, end: 20210709
  2. REMIFENTANIL HYDROCHLORIDE [Concomitant]
     Active Substance: REMIFENTANIL HYDROCHLORIDE
     Route: 042
     Dates: start: 20210709
  3. FLUMAZENIL [Concomitant]
     Active Substance: FLUMAZENIL
     Route: 042
     Dates: start: 20210709

REACTIONS (2)
  - Postoperative delirium [Recovering/Resolving]
  - Arthralgia [Recovering/Resolving]

NARRATIVE: CASE EVENT DATE: 20210709
